FAERS Safety Report 7194060-5 (Version None)
Quarter: 2010Q4

REPORT INFORMATION
  Report Type: 
  Country: None (occurrence: None)
  Receive Date: 20101223
  Receipt Date: 20101221
  Transmission Date: 20110411
  Serious: Yes (Death, Other)
  Sender: FDA-Public Use
  Company Number: HU-PFIZER INC-2010173551

PATIENT
  Age: 59 Year
  Sex: Male

DRUGS (5)
  1. SIROLIMUS [Suspect]
     Indication: IMMUNOSUPPRESSION
     Dosage: 2 MG, 1X/DAY
     Route: 048
     Dates: start: 20080101
  2. SIROLIMUS [Suspect]
     Dosage: 1 MG
  3. MYCOPHENOLATE MOFETIL [Concomitant]
     Indication: IMMUNOSUPPRESSION
     Dosage: UNK
     Dates: start: 20020301, end: 20020701
  4. MYCOPHENOLATE MOFETIL [Concomitant]
     Dosage: 1000 MG, 1X/DAY
     Dates: start: 20020701, end: 20090101
  5. MYCOPHENOLATE MOFETIL [Concomitant]
     Dosage: 500 MG, 1X/DAY
     Dates: start: 20090101

REACTIONS (4)
  - HYDROTHORAX [None]
  - MALIGNANT NEOPLASM PROGRESSION [None]
  - PNEUMONIA [None]
  - SEPSIS [None]
